FAERS Safety Report 7574007-X (Version None)
Quarter: 2011Q2

REPORT INFORMATION
  Report Type: 
  Country: None (occurrence: None)
  Receive Date: 20110627
  Receipt Date: 20110614
  Transmission Date: 20111010
  Serious: Yes (Death)
  Sender: FDA-Public Use
  Company Number: NL-JNJFOC-20110606965

PATIENT
  Sex: Male

DRUGS (7)
  1. REMICADE [Suspect]
     Indication: RHEUMATOID ARTHRITIS
     Route: 042
  2. ACTONEL [Concomitant]
     Indication: OSTEOPOROSIS PROPHYLAXIS
  3. ACETAMINOPHEN W/ CODEINE [Concomitant]
     Indication: PAIN
  4. RANITIDINE [Concomitant]
     Indication: GASTRIC DISORDER
  5. INFLIXIMAB, RECOMBINANT [Suspect]
     Indication: RHEUMATOID ARTHRITIS
     Dosage: NO DRUG GIVEN
     Route: 042
  6. CALCICHEW [Concomitant]
     Indication: OSTEOPOROSIS PROPHYLAXIS
  7. ARCOXIA [Concomitant]
     Indication: PAIN

REACTIONS (1)
  - LUNG NEOPLASM MALIGNANT [None]
